FAERS Safety Report 21007496 (Version 1)
Quarter: 2022Q2

REPORT INFORMATION
  Report Type: Spontaneous
  Country: US (occurrence: US)
  Receive Date: 20220626
  Receipt Date: 20220626
  Transmission Date: 20220720
  Serious: No
  Sender: FDA-Public Use
  Company Number: US-BoehringerIngelheim-2022-BI-178406

PATIENT
  Sex: Male

DRUGS (1)
  1. JARDIANCE [Suspect]
     Active Substance: EMPAGLIFLOZIN
     Indication: Cardiac failure
     Dates: start: 20220623

REACTIONS (1)
  - Oxygen saturation increased [Recovering/Resolving]

NARRATIVE: CASE EVENT DATE: 20220623
